FAERS Safety Report 14905508 (Version 1)
Quarter: 2018Q2

REPORT INFORMATION
  Report Type: Spontaneous
  Country: US (occurrence: US)
  Receive Date: 20180517
  Receipt Date: 20180517
  Transmission Date: 20180711
  Serious: Yes (Other)
  Sender: FDA-Public Use
  Company Number: US-ABBVIE-18S-163-2355395-00

PATIENT
  Sex: Male

DRUGS (1)
  1. ANDROGEL [Suspect]
     Active Substance: TESTOSTERONE
     Indication: ANDROGEN REPLACEMENT THERAPY
     Route: 061
     Dates: start: 20081231, end: 20120724

REACTIONS (4)
  - Acute myocardial infarction [Unknown]
  - Cardiac disorder [Unknown]
  - Cardiogenic shock [Unknown]
  - Chest pain [Unknown]

NARRATIVE: CASE EVENT DATE: 20120724
